FAERS Safety Report 4401088-4 (Version None)
Quarter: 2004Q3

REPORT INFORMATION
  Report Type: 
  Country: None (occurrence: None)
  Receive Date: 20040907
  Receipt Date: 20031024
  Transmission Date: 20050211
  Serious: No
  Sender: FDA-Public Use
  Company Number: US-BRISTOL-MYERS SQUIBB COMPANY-12418703

PATIENT
  Age: 76 Year
  Sex: Female
  Weight: 57 kg

DRUGS (6)
  1. COUMADIN [Suspect]
     Indication: THROMBOSIS PROPHYLAXIS
     Dosage: 3 MG/DAY MON., TUES., THURS., FRI., AND SAT. AND 5 MG ON SUN. AND WED TILL 1 MONTH AGO
     Route: 048
  2. CARDIZEM CD [Concomitant]
  3. DILANTIN [Concomitant]
  4. TENORMIN [Concomitant]
  5. DIGITEK [Concomitant]
  6. DEPAKOTE [Concomitant]

REACTIONS (3)
  - DYSPHAGIA [None]
  - INTERNATIONAL NORMALISED RATIO INCREASED [None]
  - PROTHROMBIN TIME PROLONGED [None]
